FAERS Safety Report 10989345 (Version 4)
Quarter: 2015Q2

REPORT INFORMATION
  Report Type: Spontaneous
  Country: US (occurrence: US)
  Receive Date: 20150406
  Receipt Date: 20150624
  Transmission Date: 20150821
  Serious: Yes (Other)
  Sender: FDA-Public Use
  Company Number: US-PFIZER INC-2015112714

PATIENT
  Age: 54 Year
  Sex: Female
  Weight: 147 kg

DRUGS (10)
  1. SUTENT [Suspect]
     Active Substance: SUNITINIB MALATE
     Indication: METASTATIC RENAL CELL CARCINOMA
     Dosage: 50 MG, CYCLIC (3 WEEKS ON, 2 WEEKS OFF)
     Dates: start: 20150126
  2. LASIX [Concomitant]
     Active Substance: FUROSEMIDE
     Dosage: UNK
  3. SUTENT [Suspect]
     Active Substance: SUNITINIB MALATE
     Dosage: 50 MG, CYCLIC (28 DAYS ON/14 DAYS OFF)
     Dates: start: 20150126
  4. SUTENT [Suspect]
     Active Substance: SUNITINIB MALATE
     Dosage: 50 MG, CYCLIC (28 DAYS ON/14 DAYS OFF)
  5. LISINOPRIL. [Concomitant]
     Active Substance: LISINOPRIL
     Dosage: UNK
  6. LEVOTHYROXINE [Concomitant]
     Active Substance: LEVOTHYROXINE
     Dosage: UNK
  7. COZAAR [Concomitant]
     Active Substance: LOSARTAN POTASSIUM
     Dosage: UNK
  8. BACLOFEN. [Concomitant]
     Active Substance: BACLOFEN
     Dosage: UNK
  9. GABAPENTIN. [Concomitant]
     Active Substance: GABAPENTIN
     Dosage: UNK
  10. SYMBICORT [Concomitant]
     Active Substance: BUDESONIDE\FORMOTEROL FUMARATE DIHYDRATE
     Dosage: UNK

REACTIONS (17)
  - Speech disorder [Unknown]
  - Glossodynia [Unknown]
  - Diarrhoea [Unknown]
  - Depressed mood [Unknown]
  - Dysgeusia [Unknown]
  - Mastoiditis [Unknown]
  - Muscle spasms [Unknown]
  - Tongue disorder [Unknown]
  - Dry mouth [Unknown]
  - Oral pain [Unknown]
  - Blister [Unknown]
  - Dry skin [Unknown]
  - Tongue dry [Unknown]
  - Neuralgia [Unknown]
  - Pain in extremity [Unknown]
  - Rash [Unknown]
  - Oral disorder [Unknown]

NARRATIVE: CASE EVENT DATE: 2015
